FAERS Safety Report 15629589 (Version 2)
Quarter: 2018Q4

REPORT INFORMATION
  Report Type: Spontaneous
  Country: IT (occurrence: IT)
  Receive Date: 20181117
  Receipt Date: 20181126
  Transmission Date: 20190205
  Serious: Yes (Hospitalization)
  Sender: FDA-Public Use
  Company Number: IT-ABBVIE-18K-083-2556248-00

PATIENT
  Age: 64 Year
  Sex: Male
  Weight: 70 kg

DRUGS (3)
  1. VIREAD [Concomitant]
     Active Substance: TENOFOVIR DISOPROXIL FUMARATE
     Indication: HEPATITIS B
  2. BARACLUDE [Concomitant]
     Active Substance: ENTECAVIR
     Indication: HEPATITIS B
  3. VENCLYXTO [Suspect]
     Active Substance: VENETOCLAX
     Indication: CHRONIC LYMPHOCYTIC LEUKAEMIA
     Dosage: 10 MG FILM COATED TABLETS
     Route: 048
     Dates: start: 20171215, end: 20181029

REACTIONS (8)
  - Anaemia [Recovering/Resolving]
  - Coombs direct test positive [Recovering/Resolving]
  - Blood bilirubin increased [Recovering/Resolving]
  - Reticulocyte count increased [Recovering/Resolving]
  - Coombs indirect test positive [Recovering/Resolving]
  - Dyspnoea [Recovering/Resolving]
  - Blood lactate dehydrogenase increased [Recovering/Resolving]
  - Asthenia [Recovering/Resolving]

NARRATIVE: CASE EVENT DATE: 20181030
